FAERS Safety Report 19873819 (Version 1)
Quarter: 2021Q3

REPORT INFORMATION
  Report Type: Report from Study
  Country: FR (occurrence: FR)
  Receive Date: 20210922
  Receipt Date: 20210922
  Transmission Date: 20211014
  Serious: Yes (Hospitalization)
  Sender: FDA-Public Use
  Company Number: FR-SERVIER-S20004603

PATIENT

DRUGS (7)
  1. TN UNSPECIFIED [PREDNISOLONE] [Suspect]
     Active Substance: PREDNISOLONE
     Indication: ACUTE LYMPHOCYTIC LEUKAEMIA
     Dosage: 65 MG, D8 TO D35
     Route: 048
     Dates: start: 20200507
  2. TN UNSPECIFIED [METHOTREXATE] [Suspect]
     Active Substance: METHOTREXATE
     Indication: ACUTE LYMPHOCYTIC LEUKAEMIA
     Dosage: 15 MG, D9,D18
     Route: 037
     Dates: start: 20200511
  3. PEGASPARGASE [Suspect]
     Active Substance: PEGASPARGASE
     Indication: ACUTE LYMPHOCYTIC LEUKAEMIA
     Dosage: 1350 IU, D12,D25
     Route: 042
     Dates: start: 20200511
  4. TN UNSPECIFIED [HYDROCORTISONE] [Suspect]
     Active Substance: HYDROCORTISONE
     Indication: ACUTE LYMPHOCYTIC LEUKAEMIA
     Dosage: 15 MG,D9,D18
     Route: 037
     Dates: start: 20200511
  5. TN UNSPECIFIED [CYTARABINE] [Suspect]
     Active Substance: CYTARABINE
     Indication: ACUTE LYMPHOCYTIC LEUKAEMIA
     Dosage: 30 MG, D9,D18
     Route: 037
     Dates: start: 20200511
  6. TN UNSPECIFIED [VINCRISTINE] [Suspect]
     Active Substance: VINCRISTINE
     Indication: ACUTE LYMPHOCYTIC LEUKAEMIA
     Dosage: 1,6 MG,D8,D13,D22,D29
     Route: 042
     Dates: start: 20200507
  7. TN UNSPECIFIED [DAUNORUBICIN] [Suspect]
     Active Substance: DAUNORUBICIN
     Indication: ACUTE LYMPHOCYTIC LEUKAEMIA
     Dosage: 33 MG, D8,D13,D22,D29
     Route: 042
     Dates: start: 20200507

REACTIONS (3)
  - Pneumonia [Recovered/Resolved]
  - Escherichia sepsis [Recovering/Resolving]
  - Diabetes mellitus [Recovered/Resolved]

NARRATIVE: CASE EVENT DATE: 20200514
